FAERS Safety Report 7178942-6 (Version None)
Quarter: 2010Q4

REPORT INFORMATION
  Report Type: 
  Country: None (occurrence: None)
  Receive Date: 20101221
  Receipt Date: 20091123
  Transmission Date: 20110411
  Serious: Yes (Death)
  Sender: FDA-Public Use
  Company Number: CN-JNJFOC-20091202655

PATIENT
  Sex: Female

DRUGS (8)
  1. ITRACONAZOLE [Suspect]
     Indication: ASPERGILLOSIS
     Route: 065
  2. FLUCONAZOLE [Suspect]
     Indication: ASPERGILLOSIS
     Route: 065
  3. AMPHOTERICIN B [Suspect]
     Indication: ASPERGILLOSIS
     Route: 065
  4. GARLICIN [Suspect]
     Indication: ASPERGILLOSIS
     Route: 065
  5. 5-FLUCYTOSINE [Suspect]
     Indication: ASPERGILLOSIS
     Route: 065
  6. GRISEOFULVIN [Concomitant]
     Indication: ASPERGILLOSIS
     Route: 065
  7. KETOCONAZOLE [Concomitant]
     Indication: ASPERGILLOSIS
     Route: 065
  8. ECONAZOLE NITRATE [Concomitant]
     Indication: ASPERGILLOSIS
     Route: 065

REACTIONS (1)
  - DRUG INEFFECTIVE [None]
